FAERS Safety Report 13024927 (Version 3)
Quarter: 2017Q1

REPORT INFORMATION
  Report Type: Report from Study
  Country: AU (occurrence: AU)
  Receive Date: 20161213
  Receipt Date: 20170310
  Transmission Date: 20170428
  Serious: Yes (Hospitalization)
  Sender: FDA-Public Use
  Company Number: AU-BIOGEN-2016BI00317340

PATIENT
  Age: 45 Year
  Sex: Female

DRUGS (3)
  1. PLEGRIDY [Suspect]
     Active Substance: PEGINTERFERON BETA-1A
     Indication: MULTIPLE SCLEROSIS
     Route: 058
     Dates: start: 20161109
  2. PLEGRIDY [Suspect]
     Active Substance: PEGINTERFERON BETA-1A
     Route: 058
     Dates: start: 20161123
  3. PLEGRIDY [Suspect]
     Active Substance: PEGINTERFERON BETA-1A
     Route: 058
     Dates: start: 201612

REACTIONS (17)
  - Influenza like illness [Not Recovered/Not Resolved]
  - Back pain [Unknown]
  - General symptom [Unknown]
  - Nasopharyngitis [Unknown]
  - Fatigue [Unknown]
  - Muscle spasms [Not Recovered/Not Resolved]
  - Pain [Unknown]
  - Injection site erythema [Recovered/Resolved with Sequelae]
  - Pain in extremity [Not Recovered/Not Resolved]
  - Vomiting [Unknown]
  - Abdominal pain [Recovered/Resolved with Sequelae]
  - Upper respiratory tract infection [Not Recovered/Not Resolved]
  - Injection site reaction [Not Recovered/Not Resolved]
  - Abdominal distension [Unknown]
  - Tearfulness [Unknown]
  - Injection site warmth [Recovered/Resolved with Sequelae]
  - Helicobacter infection [Unknown]

NARRATIVE: CASE EVENT DATE: 20161109
